FAERS Safety Report 21733166 (Version 1)
Quarter: 2022Q4

REPORT INFORMATION
  Report Type: Spontaneous
  Country: DK (occurrence: DK)
  Receive Date: 20221215
  Receipt Date: 20221215
  Transmission Date: 20230113
  Serious: Yes (Death, Life-Threatening)
  Sender: FDA-Public Use
  Company Number: None

PATIENT
  Age: 81 Year
  Sex: Female

DRUGS (2)
  1. AVASTIN [Suspect]
     Active Substance: BEVACIZUMAB
     Indication: Ovarian cancer
     Dosage: STRENGTH 25 MG/ML, CONCENTRATE FOR SOLUTION FOR INFUSION?DOSAGE: 12OCT2022: 634 MG, 26OCT2022: 605 M
     Route: 065
     Dates: start: 20221012, end: 20221109
  2. DOXORUBICIN HYDROCHLORIDE [Concomitant]
     Active Substance: DOXORUBICIN HYDROCHLORIDE
     Indication: Ovarian cancer
     Dosage: STRENGTH: 2 MG/ML
     Dates: start: 20221012, end: 20221109

REACTIONS (4)
  - Gastrointestinal motility disorder [Unknown]
  - Nausea [Unknown]
  - Abdominal pain [Unknown]
  - Intestinal perforation [Fatal]

NARRATIVE: CASE EVENT DATE: 20221117
